FAERS Safety Report 13263792 (Version 1)
Quarter: 2017Q1

REPORT INFORMATION
  Report Type: Spontaneous
  Country: US (occurrence: US)
  Receive Date: 20170222
  Receipt Date: 20170222
  Transmission Date: 20170428
  Serious: Yes (Life-Threatening, Hospitalization, Disabling, Other)
  Sender: FDA-Public Use
  Company Number: None

PATIENT
  Age: 11 Year
  Sex: Female
  Weight: 45 kg

DRUGS (1)
  1. MINOCIN [Suspect]
     Active Substance: MINOCYCLINE HYDROCHLORIDE
     Indication: ACNE
     Dates: start: 20160615, end: 20160710

REACTIONS (5)
  - Headache [None]
  - Diplopia [None]
  - Blindness [None]
  - Benign intracranial hypertension [None]
  - Vomiting [None]

NARRATIVE: CASE EVENT DATE: 20160705
